FAERS Safety Report 18597745 (Version 1)
Quarter: 2020Q4

REPORT INFORMATION
  Report Type: Spontaneous
  Country: TH (occurrence: TH)
  Receive Date: 20201210
  Receipt Date: 20201210
  Transmission Date: 20210114
  Serious: Yes (Other)
  Sender: FDA-Public Use
  Company Number: TH-SUN PHARMACEUTICAL INDUSTRIES LTD-2020R1-269543

PATIENT
  Age: 48 Year
  Sex: Female

DRUGS (1)
  1. ATENOLOL. [Suspect]
     Active Substance: ATENOLOL
     Indication: PALPITATIONS
     Dosage: 50 MILLIGRAM,UNK
     Route: 065

REACTIONS (2)
  - Phaeochromocytoma crisis [Recovered/Resolved]
  - Cardiomyopathy [Recovered/Resolved]
